FAERS Safety Report 15096688 (Version 8)
Quarter: 2019Q1

REPORT INFORMATION
  Report Type: Report from Study
  Country: US (occurrence: US)
  Receive Date: 20180702
  Receipt Date: 20190206
  Transmission Date: 20190417
  Serious: Yes (Other)
  Sender: FDA-Public Use
  Company Number: PHEH2018US026904

PATIENT
  Age: 54 Year
  Sex: Female

DRUGS (6)
  1. PRANDIN [Concomitant]
     Active Substance: REPAGLINIDE
     Indication: PRODUCT USED FOR UNKNOWN INDICATION
     Dosage: UNK
     Route: 065
  2. INSULIN [Concomitant]
     Active Substance: INSULIN NOS
     Indication: PRODUCT USED FOR UNKNOWN INDICATION
     Dosage: UNK
     Route: 065
  3. ILARIS [Suspect]
     Active Substance: CANAKINUMAB
     Indication: MUCKLE-WELLS SYNDROME
     Dosage: 150 MG, Q4W
     Route: 058
  4. ILARIS [Suspect]
     Active Substance: CANAKINUMAB
     Indication: AUTOINFLAMMATORY DISEASE
  5. ILARIS [Suspect]
     Active Substance: CANAKINUMAB
     Indication: FAMILIAL MEDITERRANEAN FEVER
  6. ILARIS [Suspect]
     Active Substance: CANAKINUMAB
     Indication: CRYOPYRIN ASSOCIATED PERIODIC SYNDROME

REACTIONS (13)
  - Breath sounds abnormal [Not Recovered/Not Resolved]
  - Musculoskeletal stiffness [Unknown]
  - Pain [Unknown]
  - Blood glucose fluctuation [Recovering/Resolving]
  - Nasal congestion [Recovering/Resolving]
  - Back pain [Not Recovered/Not Resolved]
  - Headache [Recovering/Resolving]
  - Musculoskeletal pain [Not Recovered/Not Resolved]
  - Chest pain [Unknown]
  - Haemoptysis [Unknown]
  - Musculoskeletal chest pain [Not Recovered/Not Resolved]
  - Seizure [Unknown]
  - Respiratory tract infection [Unknown]

NARRATIVE: CASE EVENT DATE: 20180808
